FAERS Safety Report 13360729 (Version 1)
Quarter: 2017Q1

REPORT INFORMATION
  Report Type: Spontaneous
  Country: DE (occurrence: DE)
  Receive Date: 20170322
  Receipt Date: 20170322
  Transmission Date: 20170429
  Serious: Yes (Other)
  Sender: FDA-Public Use
  Company Number: DE-ALLERGAN-1710677US

PATIENT
  Age: 1 Day
  Sex: Male
  Weight: 2.8 kg

DRUGS (3)
  1. ESCITALOPRAM OXALATE - BP [Suspect]
     Active Substance: ESCITALOPRAM OXALATE
     Indication: MATERNAL EXPOSURE TIMING UNSPECIFIED
     Dosage: 25 MG, QD
     Route: 064
     Dates: start: 20151212, end: 20160914
  2. L-THYROXIN [Concomitant]
     Active Substance: LEVOTHYROXINE SODIUM
     Indication: MATERNAL EXPOSURE TIMING UNSPECIFIED
     Dosage: 100 ?G, QD
     Route: 064
     Dates: start: 20151212, end: 20160914
  3. BUPROPION. [Suspect]
     Active Substance: BUPROPION
     Indication: MATERNAL EXPOSURE TIMING UNSPECIFIED
     Dosage: 150 MG, QD
     Route: 064
     Dates: start: 20151212, end: 20160914

REACTIONS (3)
  - Drug withdrawal syndrome neonatal [Recovered/Resolved]
  - Small for dates baby [Recovered/Resolved]
  - Foetal exposure during pregnancy [Unknown]

NARRATIVE: CASE EVENT DATE: 20160914
